FAERS Safety Report 5645054-X (Version None)
Quarter: 2008Q1

REPORT INFORMATION
  Report Type: 
  Country: None (occurrence: None)
  Receive Date: 20080229
  Receipt Date: 20080218
  Transmission Date: 20080703
  Serious: Yes (Hospitalization)
  Sender: FDA-Public Use
  Company Number: US-ELI_LILLY_AND_COMPANY-US200802004081

PATIENT
  Sex: Male

DRUGS (3)
  1. FORTEO [Suspect]
     Indication: OSTEOPOROSIS
     Dosage: UNK, UNK
     Dates: start: 20060801
  2. FORTEO [Suspect]
     Dosage: UNK D/F, UNK
  3. FORTEO [Suspect]
     Dates: start: 20080208, end: 20080210

REACTIONS (4)
  - ADVERSE DRUG REACTION [None]
  - MOBILITY DECREASED [None]
  - NAUSEA [None]
  - RESPIRATORY DISORDER [None]
